FAERS Safety Report 6606516-1 (Version None)
Quarter: 2010Q1

REPORT INFORMATION
  Report Type: 
  Country: None (occurrence: None)
  Receive Date: 20100226
  Receipt Date: 20100222
  Transmission Date: 20100710
  Serious: Yes (Death, Hospitalization, Other)
  Sender: FDA-Public Use
  Company Number: PHEH2008US05592

PATIENT
  Sex: Female
  Weight: 58.503 kg

DRUGS (31)
  1. ZOMETA [Suspect]
     Dosage: 4 MG / EVERY 4 WEEKS
     Dates: start: 20060310, end: 20060804
  2. FASLODEX [Concomitant]
     Dosage: UNK
     Dates: start: 20051101, end: 20060801
  3. ABRAXANE [Concomitant]
     Dosage: 485 MG
     Dates: end: 20070501
  4. AVASTIN [Concomitant]
     Dosage: 1065 MG
     Dates: end: 20070501
  5. KYTRIL [Concomitant]
  6. BENADRYL ^PFIZER WARNER-LAMBERT^ [Concomitant]
  7. RANITIDINE [Concomitant]
     Dosage: 25 MG, UNK
  8. DOXORUBICIN HCL [Concomitant]
  9. IXABEPILONE [Concomitant]
     Dosage: UNK
     Dates: start: 20080523
  10. TAMOXIFEN CITRATE [Concomitant]
  11. DOXIL [Concomitant]
  12. COUMADIN [Concomitant]
     Indication: DEEP VEIN THROMBOSIS
     Dosage: UNK
  13. NAVELBINE [Concomitant]
     Dosage: 40 MG / WEEKLY
  14. DURAGESIC-100 [Concomitant]
     Dosage: UNK
  15. OXYCONTIN [Concomitant]
     Dosage: UNK
  16. LORTAB [Concomitant]
     Dosage: UNK
  17. POTASSIUM [Concomitant]
     Dosage: UNK
  18. NEUPOGEN [Concomitant]
     Dosage: UNK
  19. NEULASTA [Concomitant]
     Dosage: 6 MG
     Route: 058
  20. XELODA [Concomitant]
     Dosage: UNK
  21. AMPICILLIN [Concomitant]
     Indication: OSTEONECROSIS
     Dosage: UNK
  22. ARANESP [Concomitant]
     Dosage: 500 MCG/ EVERY THREE WEEKS
  23. CLEOCIN [Concomitant]
     Dosage: 300 MG / 3 X DAILY
     Route: 048
  24. LEVAQUIN [Concomitant]
     Dosage: 500 MG / DAILY
     Route: 048
  25. TRANSDERM V [Concomitant]
     Dosage: 1.5 MG, UNK
     Route: 062
  26. PROCHLORPERAZINE [Concomitant]
     Dosage: 25 MG, UNK
     Route: 054
  27. PROCRIT [Concomitant]
     Dosage: 40000 M, UNK
  28. REGLAN [Concomitant]
     Dosage: 10 MG, UNK
     Route: 048
  29. DEXAMETHASONE [Concomitant]
     Dosage: 4 MG, UNK
     Route: 048
  30. PROTONIX [Concomitant]
     Dosage: 40 MG, UNK
     Route: 048
  31. CIPRO [Concomitant]
     Dosage: 750 MG, UNK
     Route: 048

REACTIONS (61)
  - ABDOMINAL PAIN [None]
  - ANAEMIA [None]
  - ANHEDONIA [None]
  - ANXIETY [None]
  - ARTHRITIS [None]
  - ASTHENIA [None]
  - ATELECTASIS [None]
  - BONE DISORDER [None]
  - BREAST CANCER METASTATIC [None]
  - CARDIAC DISORDER [None]
  - CARDIAC TAMPONADE [None]
  - CARDIOMEGALY [None]
  - CARDIOPULMONARY FAILURE [None]
  - CENTRAL VENOUS CATHETERISATION [None]
  - CERVICITIS [None]
  - CHEST TUBE INSERTION [None]
  - CHRONIC OBSTRUCTIVE PULMONARY DISEASE [None]
  - COLITIS [None]
  - CONSTIPATION [None]
  - DEEP VEIN THROMBOSIS [None]
  - DENTAL CARIES [None]
  - DEPRESSION [None]
  - DIZZINESS [None]
  - DYSPNOEA [None]
  - GASTROOESOPHAGEAL REFLUX DISEASE [None]
  - HEADACHE [None]
  - HYPOKALAEMIA [None]
  - HYPOTENSION [None]
  - HYSTERECTOMY [None]
  - INJURY [None]
  - LEUKOCYTOSIS [None]
  - LOOSE TOOTH [None]
  - LOSS OF CONSCIOUSNESS [None]
  - MALIGNANT PLEURAL EFFUSION [None]
  - METASTASES TO BONE [None]
  - METASTASES TO CENTRAL NERVOUS SYSTEM [None]
  - METASTASES TO CHEST WALL [None]
  - METASTASES TO LIVER [None]
  - METASTASES TO SPINE [None]
  - MYOCARDIAL INFARCTION [None]
  - NERVOUSNESS [None]
  - OEDEMA PERIPHERAL [None]
  - OSTEONECROSIS [None]
  - OSTEOPENIA [None]
  - PAIN [None]
  - PAIN IN JAW [None]
  - PERICARDIAL DRAINAGE [None]
  - PERICARDIAL EFFUSION [None]
  - PERICARDIAL EXCISION [None]
  - PNEUMOTHORAX [None]
  - PRODUCTIVE COUGH [None]
  - RASH [None]
  - SALPINGO-OOPHORECTOMY BILATERAL [None]
  - TACHYARRHYTHMIA [None]
  - THORACOTOMY [None]
  - TOOTH EXTRACTION [None]
  - TOOTH INFECTION [None]
  - TOOTHACHE [None]
  - UNRESPONSIVE TO STIMULI [None]
  - UTERINE CERVICAL SQUAMOUS METAPLASIA [None]
  - WEIGHT DECREASED [None]
